FAERS Safety Report 7652553-8 (Version None)
Quarter: 2011Q3

REPORT INFORMATION
  Report Type: 
  Country: None (occurrence: None)
  Receive Date: 20110803
  Receipt Date: 20110725
  Transmission Date: 20111222
  Serious: Yes (Hospitalization)
  Sender: FDA-Public Use
  Company Number: FR-BRISTOL-MYERS SQUIBB COMPANY-15929151

PATIENT
  Age: 38 Year
  Sex: Female

DRUGS (4)
  1. VIREAD [Suspect]
     Indication: HIV INFECTION
     Dosage: INTERRUPTED FROM 09-NOV-2008 TO 12-NOV-2008
     Route: 048
     Dates: start: 20051011
  2. REYATAZ [Suspect]
     Indication: HIV INFECTION
     Dosage: 1DF=2 CAPSULES.INTERRUPTED FROM 09-NOV-2008 TO 12-NOV-2008
     Route: 048
     Dates: start: 20051011
  3. NORVIR [Suspect]
     Indication: HIV INFECTION
     Dosage: INTERRUPTED FROM 09-NOV-2008 TO 12-NOV-2008
     Route: 048
     Dates: start: 20051011
  4. ZIAGEN [Suspect]
     Indication: HIV INFECTION
     Dosage: INTERRUPTED FROM 09-NOV-2008 TO 12-NOV-2008
     Route: 048
     Dates: start: 20051011

REACTIONS (3)
  - RENAL COLIC [None]
  - HAEMATURIA [None]
  - RENAL FAILURE [None]
